FAERS Safety Report 15813076 (Version 1)
Quarter: 2019Q1

REPORT INFORMATION
  Report Type: Spontaneous
  Country: AU (occurrence: AU)
  Receive Date: 20190111
  Receipt Date: 20190111
  Transmission Date: 20190417
  Serious: Yes (Death, Life-Threatening, Other)
  Sender: FDA-Public Use
  Company Number: AU-MACLEODS PHARMACEUTICALS US LTD-MAC2018019488

PATIENT

DRUGS (11)
  1. AMITRIPTYLLINE [Suspect]
     Active Substance: AMITRIPTYLINE
     Indication: ANXIETY
  2. TEMAZEPAM. [Suspect]
     Active Substance: TEMAZEPAM
     Indication: INSOMNIA
     Dosage: UNK
     Route: 065
  3. SUMATRIPTAN. [Concomitant]
     Active Substance: SUMATRIPTAN
     Indication: MIGRAINE
     Dosage: UNK
     Route: 065
  4. OXYCODONE [Suspect]
     Active Substance: OXYCODONE
     Indication: ENDOMETRIOSIS
     Dosage: 1 DOSAGE FORM, IMMEDIATE-RELEASE.20 X 5 MG TABLETS, ONE TO BE TAKEN EVERY SIX HOURS AS NEEDED
     Route: 048
  5. ALPRAZOLAM. [Suspect]
     Active Substance: ALPRAZOLAM
     Indication: PANIC ATTACK
     Dosage: UNK
     Route: 065
  6. AMITRIPTYLLINE [Suspect]
     Active Substance: AMITRIPTYLINE
     Indication: DEPRESSION
     Dosage: UNK
     Route: 065
  7. TRAMADOL HYDROCHLORIDE. [Suspect]
     Active Substance: TRAMADOL HYDROCHLORIDE
     Indication: PAIN
     Dosage: UNK, INJECTION
     Route: 065
  8. FENTANYL. [Suspect]
     Active Substance: FENTANYL
     Indication: BACK PAIN
     Dosage: 25 MICROGRAM
     Route: 065
  9. QUETIAPINE. [Suspect]
     Active Substance: QUETIAPINE
     Indication: INSOMNIA
     Dosage: UNK
     Route: 065
  10. DIAZEPAM. [Suspect]
     Active Substance: DIAZEPAM
     Indication: INSOMNIA
     Dosage: UNK
     Route: 065
  11. SERTRALINE [Suspect]
     Active Substance: SERTRALINE HYDROCHLORIDE
     Indication: PRODUCT USED FOR UNKNOWN INDICATION
     Dosage: UNK, DOSAGE OF THE DRUGS WAS NOT IN THE FATAL RANGE
     Route: 065

REACTIONS (5)
  - Prescription drug used without a prescription [Unknown]
  - Drug abuse [Unknown]
  - Intentional product misuse [Unknown]
  - Toxicity to various agents [Fatal]
  - Drug dependence [Unknown]
